FAERS Safety Report 7103598-8 (Version None)
Quarter: 2010Q4

REPORT INFORMATION
  Report Type: 
  Country: None (occurrence: None)
  Receive Date: 20101115
  Receipt Date: 20101110
  Transmission Date: 20110411
  Serious: Yes (Death)
  Sender: FDA-Public Use
  Company Number: US-CELGENEUS-163-21880-10111601

PATIENT
  Sex: Female

DRUGS (1)
  1. REVLIMID [Suspect]
     Indication: MULTIPLE MYELOMA
     Route: 048
     Dates: start: 20090630

REACTIONS (7)
  - BACK PAIN [None]
  - BLOOD CREATININE ABNORMAL [None]
  - CYSTITIS [None]
  - CYSTITIS ESCHERICHIA [None]
  - DEATH [None]
  - JOINT SWELLING [None]
  - STREPTOCOCCAL BACTERAEMIA [None]
